FAERS Safety Report 7953047-2 (Version None)
Quarter: 2011Q4

REPORT INFORMATION
  Report Type: 
  Country: None (occurrence: None)
  Receive Date: 20111201
  Receipt Date: 20111123
  Transmission Date: 20120403
  Serious: Yes (Death, Hospitalization, Other)
  Sender: FDA-Public Use
  Company Number: US-BAXTER-2011BH035143

PATIENT
  Age: 81 Year
  Sex: Male

DRUGS (2)
  1. EXTRANEAL [Suspect]
     Indication: PERITONEAL DIALYSIS
     Route: 033
     Dates: start: 20110524, end: 20111109
  2. DIANEAL [Suspect]
     Indication: PERITONEAL DIALYSIS
     Route: 033
     Dates: start: 20070815, end: 20111109

REACTIONS (7)
  - INFECTION [None]
  - INFECTIOUS PERITONITIS [None]
  - ASTHENIA [None]
  - CONFUSIONAL STATE [None]
  - PERITONEAL DIALYSIS COMPLICATION [None]
  - CONVULSION [None]
  - CARDIAC DISORDER [None]
